FAERS Safety Report 7784852-3 (Version None)
Quarter: 2011Q3

REPORT INFORMATION
  Report Type: 
  Country: None (occurrence: None)
  Receive Date: 20110928
  Receipt Date: 20110926
  Transmission Date: 20111222
  Serious: Yes (Other)
  Sender: FDA-Public Use
  Company Number: US-PFIZER INC-2011118203

PATIENT
  Sex: Male

DRUGS (2)
  1. SUTENT [Suspect]
     Dosage: UNK
     Dates: start: 20110922
  2. SUTENT [Suspect]
     Indication: RENAL CELL CARCINOMA
     Dosage: 50 MG, 1X/DAY, FOR 28 DAYS Q 42 DAY
     Route: 048
     Dates: start: 20110416, end: 20110908

REACTIONS (2)
  - OROPHARYNGEAL SPASM [None]
  - WEIGHT DECREASED [None]
